FAERS Safety Report 7153411-8 (Version None)
Quarter: 2010Q4

REPORT INFORMATION
  Report Type: 
  Country: None (occurrence: None)
  Receive Date: 20101213
  Receipt Date: 20101201
  Transmission Date: 20110411
  Serious: Yes (Hospitalization)
  Sender: FDA-Public Use
  Company Number: A0885080A

PATIENT
  Age: 65 Year
  Sex: Female
  Weight: 70.5 kg

DRUGS (10)
  1. AVANDIA [Suspect]
     Dosage: 8MG PER DAY
     Route: 048
     Dates: start: 20020901, end: 20100101
  2. METFORMIN [Concomitant]
  3. CARTIA XT [Concomitant]
  4. DIGOXIN [Concomitant]
  5. ENALAPRIL [Concomitant]
  6. LIPITOR [Concomitant]
  7. COUMADIN [Concomitant]
  8. EVISTA [Concomitant]
  9. HYDROCHLOROTHIAZIDE [Concomitant]
  10. MULTI-VITAMIN [Concomitant]

REACTIONS (4)
  - ACUTE CORONARY SYNDROME [None]
  - ATRIAL FIBRILLATION [None]
  - CARDIAC DISORDER [None]
  - MYOCARDIAL INFARCTION [None]
